FAERS Safety Report 10727926 (Version 3)
Quarter: 2015Q3

REPORT INFORMATION
  Report Type: Spontaneous
  Country: GR (occurrence: GR)
  Receive Date: 20150121
  Receipt Date: 20150708
  Transmission Date: 20151125
  Serious: Yes (Hospitalization)
  Sender: FDA-Public Use
  Company Number: GR-009507513-1501GRC007053

PATIENT
  Age: 33 Year
  Sex: Female

DRUGS (3)
  1. PEGINTRON [Suspect]
     Active Substance: PEGINTERFERON ALFA-2B
     Indication: HEPATITIS C
     Dosage: FORMULATION ^PS. INJ. SOL. PREFILL PEN^ DOSE REGIMEN 100
     Dates: start: 20141113, end: 20150115
  2. VICTRELIS [Suspect]
     Active Substance: BOCEPREVIR
     Indication: HEPATITIS C
     Dosage: DOSE REGIMEN 4X3
     Route: 048
     Dates: start: 20141210, end: 20150115
  3. REBETOL [Suspect]
     Active Substance: RIBAVIRIN
     Indication: HEPATITIS C
     Dosage: DOSE REGIMEN 1000
     Route: 048
     Dates: start: 20141113, end: 20150115

REACTIONS (4)
  - Anaemia [Recovering/Resolving]
  - White blood cell count abnormal [Unknown]
  - Lower respiratory tract infection [Recovering/Resolving]
  - Febrile neutropenia [Recovering/Resolving]
